FAERS Safety Report 6283629-8 (Version None)
Quarter: 2009Q3

REPORT INFORMATION
  Report Type: 
  Country: None (occurrence: None)
  Receive Date: 20090724
  Receipt Date: 20090526
  Transmission Date: 20100115
  Serious: Yes (Hospitalization)
  Sender: FDA-Public Use
  Company Number: US-ALEXION-A200900387

PATIENT
  Sex: Female

DRUGS (5)
  1. SOLIRIS [Suspect]
     Indication: PAROXYSMAL NOCTURNAL HAEMOGLOBINURIA
     Dosage: 600 MG, QW
     Route: 042
     Dates: start: 20081218, end: 20090107
  2. SOLIRIS [Suspect]
     Dosage: 900 MG, Q2W
     Route: 042
     Dates: start: 20090101
  3. OXYCONTIN [Concomitant]
     Indication: MUSCLE SPASMS
     Dosage: 20 MG, Q12H
     Route: 048
  4. OXYCONTIN [Concomitant]
     Indication: ARTHRALGIA
  5. OXYCONTIN [Concomitant]
     Indication: PAIN

REACTIONS (3)
  - APLASTIC ANAEMIA [None]
  - ARTHRALGIA [None]
  - MUSCLE SPASMS [None]
